FAERS Safety Report 8663812 (Version 3)
Quarter: 2013Q2

REPORT INFORMATION
  Report Type: Report from Study
  Country: JP (occurrence: JP)
  Receive Date: 20120713
  Receipt Date: 20130517
  Transmission Date: 20140414
  Serious: Yes (Hospitalization)
  Sender: FDA-Public Use
  Company Number: JP-009507513-1207JPN001500

PATIENT
  Age: 64 Year
  Sex: Male
  Weight: 57 kg

DRUGS (14)
  1. REBETOL [Suspect]
     Indication: CHRONIC HEPATITIS C
     Dosage: 400 MG, QD
     Route: 048
     Dates: start: 20120106, end: 20120110
  2. REBETOL [Suspect]
     Dosage: 400 MG, QD
     Route: 048
     Dates: start: 20120215
  3. PEGINTRON [Suspect]
     Indication: HEPATITIS C
     Dosage: 1.5 MICROGRAM PER KILOGRAM, QW
     Route: 058
     Dates: start: 20120106, end: 20120110
  4. PEGINTRON [Suspect]
     Dosage: 1.5 MICROGRAM PER KILOGRAM, QW
     Route: 058
     Dates: start: 20120215, end: 20120222
  5. PEGINTRON [Suspect]
     Dosage: 1.05 MICROGRAM PER KILOGRAM, QW
     Route: 058
     Dates: start: 20120229, end: 20120605
  6. PEGINTRON [Suspect]
     Dosage: 1.32 MICROGRAM PER KILOGRAM, QW
     Route: 058
     Dates: start: 20120606
  7. TELAVIC [Suspect]
     Indication: CHRONIC HEPATITIS C
     Dosage: 2250 MG, QD
     Route: 048
     Dates: start: 20120106, end: 20120110
  8. TELAVIC [Suspect]
     Dosage: 750 MG, QD
     Route: 048
     Dates: start: 20120215, end: 20120221
  9. TELAVIC [Suspect]
     Dosage: 1500 MG, QD
     Route: 048
     Dates: start: 20120222, end: 20120502
  10. TELAVIC [Suspect]
     Dosage: 750 MG, QD
     Route: 048
     Dates: start: 20120503, end: 20120509
  11. ZYLORIC [Concomitant]
     Indication: PROPHYLAXIS
     Dosage: 200 MG, QD
     Route: 048
     Dates: start: 20120215, end: 20120404
  12. ZYLORIC [Concomitant]
     Dosage: 100 MG, ONCE
     Route: 048
     Dates: start: 20120405, end: 20120515
  13. JUZEN-TAIHO-TO [Concomitant]
     Indication: PROPHYLAXIS
     Dosage: 2.5 G, QD
     Route: 048
     Dates: start: 20120321
  14. JUZEN-TAIHO-TO [Concomitant]
     Dosage: 7.5 G, ONCE
     Route: 048
     Dates: start: 20120321

REACTIONS (1)
  - Ascites [Recovering/Resolving]
